FAERS Safety Report 16437645 (Version 2)
Quarter: 2020Q3

REPORT INFORMATION
  Report Type: Spontaneous
  Country: US (occurrence: US)
  Receive Date: 20190615
  Receipt Date: 20200907
  Transmission Date: 20201102
  Serious: Yes (Other)
  Sender: FDA-Public Use
  Company Number: US-TAKEDA-2019TUS036775

PATIENT

DRUGS (2)
  1. ENTYVIO [Suspect]
     Active Substance: VEDOLIZUMAB
     Indication: CROHN^S DISEASE
     Dosage: UNK
     Route: 065
     Dates: start: 201401, end: 201710
  2. ENTYVIO [Suspect]
     Active Substance: VEDOLIZUMAB
     Indication: POUCHITIS

REACTIONS (2)
  - Abdominal abscess [Unknown]
  - Off label use [Unknown]
